FAERS Safety Report 7229795-9 (Version None)
Quarter: 2011Q1

REPORT INFORMATION
  Report Type: 
  Country: None (occurrence: None)
  Receive Date: 20110117
  Receipt Date: 20110110
  Transmission Date: 20110831
  Serious: Yes (Hospitalization)
  Sender: FDA-Public Use
  Company Number: US-GILEAD-2010-0034626

PATIENT
  Sex: Male

DRUGS (1)
  1. LETAIRIS [Suspect]
     Indication: PRODUCT USED FOR UNKNOWN INDICATION
     Route: 048
     Dates: start: 20090715

REACTIONS (5)
  - CARDIAC DISORDER [None]
  - RENAL FAILURE ACUTE [None]
  - ILEUS [None]
  - CARDIAC FAILURE CONGESTIVE [None]
  - PNEUMONIA KLEBSIELLA [None]
